FAERS Safety Report 6443841-1 (Version None)
Quarter: 2009Q4

REPORT INFORMATION
  Report Type: 
  Country: None (occurrence: None)
  Receive Date: 20091117
  Receipt Date: 20091112
  Transmission Date: 20100525
  Serious: Yes (Death)
  Sender: FDA-Public Use
  Company Number: BR-ABBOTT-09P-020-0608272-00

PATIENT
  Sex: Female

DRUGS (2)
  1. HUMIRA [Suspect]
     Indication: RHEUMATOID ARTHRITIS
     Dates: start: 20090401, end: 20090801
  2. CHLOROQUINE [Concomitant]
     Indication: RHEUMATOID ARTHRITIS

REACTIONS (4)
  - CELLULITIS [None]
  - PNEUMONITIS [None]
  - RHEUMATOID ARTHRITIS [None]
  - SEPTIC SHOCK [None]
